FAERS Safety Report 18507550 (Version 6)
Quarter: 2022Q2

REPORT INFORMATION
  Report Type: Report from Study
  Country: BR (occurrence: BR)
  Receive Date: 20201116
  Receipt Date: 20220628
  Transmission Date: 20220720
  Serious: Yes (Other)
  Sender: FDA-Public Use
  Company Number: BR-002147023-NVSC2020BR288093

PATIENT
  Age: 41 Year
  Sex: Female
  Weight: 53 kg

DRUGS (5)
  1. ERENUMAB [Suspect]
     Active Substance: ERENUMAB
     Indication: Migraine
     Dosage: UNK UNK, Q4W (EVERY 28 DAYS)
     Route: 058
     Dates: start: 20200907, end: 20200907
  2. EUTHYROX [Concomitant]
     Active Substance: LEVOTHYROXINE SODIUM
     Indication: Hypothyroidism
     Dosage: 75 UG (IN FASTING (MERCK))
     Route: 048
     Dates: start: 200406
  3. FERROUS BISGLYCINATE [Concomitant]
     Active Substance: FERROUS BISGLYCINATE
     Indication: Anaemia
     Dosage: 300 MG, QD (IN THE NIGHT) (EMS)
     Route: 048
     Dates: start: 202006
  4. FERROUS BISGLYCINATE [Concomitant]
     Active Substance: FERROUS BISGLYCINATE
     Indication: Anaemia
  5. CHOLECALCIFEROL [Concomitant]
     Active Substance: CHOLECALCIFEROL
     Indication: Hyperparathyroidism
     Dosage: 2000 UI, QD (IN THE NIGHT) (VITERSOL DK2)
     Route: 048
     Dates: start: 201911

REACTIONS (22)
  - Conjunctival oedema [Recovered/Resolved]
  - Pain [Recovered/Resolved]
  - Swelling of eyelid [Recovered/Resolved]
  - Peripheral swelling [Unknown]
  - Joint swelling [Unknown]
  - Eye swelling [Recovered/Resolved]
  - Swelling face [Unknown]
  - Laryngeal oedema [Unknown]
  - Eyelid oedema [Recovered/Resolved]
  - Drug hypersensitivity [Recovered/Resolved]
  - Visual impairment [Unknown]
  - Visual field defect [Unknown]
  - Meibomianitis [Unknown]
  - Maternal exposure during pregnancy [Unknown]
  - Hypoaesthesia [Recovered/Resolved]
  - Migraine [Recovered/Resolved]
  - Migraine [Recovered/Resolved]
  - Nausea [Recovered/Resolved]
  - Motion sickness [Recovered/Resolved]
  - Migraine [Recovered/Resolved]
  - Visual impairment [Recovered/Resolved]
  - Migraine [Recovered/Resolved]

NARRATIVE: CASE EVENT DATE: 20200910
